FAERS Safety Report 7785019-5 (Version None)
Quarter: 2011Q3

REPORT INFORMATION
  Report Type: 
  Country: None (occurrence: None)
  Receive Date: 20110929
  Receipt Date: 20110926
  Transmission Date: 20111222
  Serious: Yes (Hospitalization)
  Sender: FDA-Public Use
  Company Number: DE-BRISTOL-MYERS SQUIBB COMPANY-15471790

PATIENT
  Age: 42 Year
  Sex: Male
  Weight: 90 kg

DRUGS (5)
  1. THIOCOLCHICOSIDE [Suspect]
  2. ABILIFY [Suspect]
     Route: 048
  3. ALCOHOL [Suspect]
     Dosage: 1DF=2 BOTTLES.500ML SCHNAPPS(DISTILLED ALCOHOLIC BEVERAGE)
  4. ACAMPROSATE [Suspect]
     Dosage: ACAMPROSATE 333
  5. FLUOXETINE [Suspect]
     Dosage: 1DF:40 UNITS NOT SPECIFIED
     Route: 048

REACTIONS (5)
  - VOMITING [None]
  - COMA [None]
  - SUICIDE ATTEMPT [None]
  - AGGRESSION [None]
  - MYDRIASIS [None]
